FAERS Safety Report 8304080-2 (Version None)
Quarter: 2012Q1

REPORT INFORMATION
  Report Type: 
  Country: None (occurrence: None)
  Receive Date: 20120326
  Receipt Date: 20110323
  Transmission Date: 20120608
  Serious: Yes (Other)
  Sender: FDA-Public Use
  Company Number: PHHY2011US24034

PATIENT
  Sex: Male

DRUGS (6)
  1. NEXIUM [Concomitant]
  2. TASIGNA [Suspect]
     Dosage: 200 MG, BID
  3. TRAMADOL HCL [Concomitant]
  4. BETA BLOCKING AGENTS (NO INGREDIENTS/SUBSTANCES) [Concomitant]
  5. LISINOPRIL [Concomitant]
  6. LORTAB [Concomitant]

REACTIONS (2)
  - HYPOAESTHESIA [None]
  - NEUROPATHY PERIPHERAL [None]
